FAERS Safety Report 10145038 (Version 3)
Quarter: 2014Q2

REPORT INFORMATION
  Report Type: Spontaneous
  Country: US (occurrence: US)
  Receive Date: 20140501
  Receipt Date: 20140610
  Transmission Date: 20141212
  Serious: Yes (Other)
  Sender: FDA-Public Use
  Company Number: US-ROCHE-1329345

PATIENT
  Sex: Female

DRUGS (2)
  1. XELODA [Suspect]
     Indication: PRODUCT USED FOR UNKNOWN INDICATION
     Dosage: 2 TABLETS IN THE MORNING AND 1 TABLET IN THE EVENING FOR 7 DAYS ON AND 7 DAYS OFF
     Route: 048
     Dates: start: 20130328, end: 20140329
  2. XELODA [Suspect]
     Dosage: 2 TABS AM, 1 TAB PM: 7 DAYS ON AND 7 OFF
     Route: 048
     Dates: start: 20140312

REACTIONS (4)
  - Neoplasm malignant [Not Recovered/Not Resolved]
  - Pharyngeal oedema [Not Recovered/Not Resolved]
  - Constipation [Unknown]
  - Nausea [Not Recovered/Not Resolved]
